FAERS Safety Report 8474601-8 (Version None)
Quarter: 2012Q2

REPORT INFORMATION
  Report Type: 
  Country: None (occurrence: None)
  Receive Date: 20120628
  Receipt Date: 20120626
  Transmission Date: 20120825
  Serious: Yes (Hospitalization)
  Sender: FDA-Public Use
  Company Number: SE-NAPPMUNDI-GBR-2012-0010816

PATIENT
  Sex: Female
  Weight: 76 kg

DRUGS (2)
  1. BUPRENORPHINE [Suspect]
     Indication: PAIN
     Dosage: 10 MCG, Q1H
     Route: 062
     Dates: start: 20120503
  2. DULOXETINE HYDROCHLORIDE [Concomitant]
     Indication: INCONTINENCE
     Dosage: 20 UNK, UNK
     Route: 048

REACTIONS (1)
  - UPPER LIMB FRACTURE [None]
